FAERS Safety Report 7555551-8 (Version None)
Quarter: 2011Q2

REPORT INFORMATION
  Report Type: 
  Country: None (occurrence: None)
  Receive Date: 20110617
  Receipt Date: 20041216
  Transmission Date: 20111010
  Serious: Yes (Other)
  Sender: FDA-Public Use
  Company Number: PHHO2004NL17946

PATIENT
  Age: 50 Year
  Sex: Female

DRUGS (2)
  1. VALSARTAN/HYDROCHLOROTHIAZIDE [Suspect]
     Indication: HYPERTENSION
     Dosage: UNKNOWN
     Dates: start: 20040908, end: 20041122
  2. CALCIUM CHANNEL BLOCKERS [Concomitant]
     Indication: ARTERIOSPASM CORONARY
     Dosage: UNKNOWN

REACTIONS (2)
  - HYPOTENSION [None]
  - ANGINA PECTORIS [None]
